FAERS Safety Report 5676409-5 (Version None)
Quarter: 2008Q1

REPORT INFORMATION
  Report Type: 
  Country: None (occurrence: None)
  Receive Date: 20080321
  Receipt Date: 20080312
  Transmission Date: 20080703
  Serious: Yes (Hospitalization)
  Sender: FDA-Public Use
  Company Number: JP-PFIZER INC-2008023729

PATIENT
  Sex: Male
  Weight: 74.4 kg

DRUGS (16)
  1. SU-011,248 [Suspect]
     Indication: COLORECTAL CANCER
     Route: 048
  2. OXALIPLATIN [Suspect]
     Indication: COLORECTAL CANCER
     Dosage: DAILY DOSE:85MG/M*2
     Route: 042
  3. CALCIUM LEVOFOLINATE [Suspect]
     Indication: COLORECTAL CANCER
     Dosage: DAILY DOSE:200MG/M*2
  4. FLUOROURACIL [Suspect]
     Indication: COLORECTAL CANCER
     Dosage: DAILY DOSE:400MG/M*2-TEXT:400 MG/M2, BOLUS
     Route: 042
  5. FLUOROURACIL [Suspect]
     Dosage: DAILY DOSE:2400MG/M*2-TEXT:2400 MG/M2, CONTINUOUS INFUSION
     Route: 042
  6. GRANISETRON HYDROCHLORIDE [Concomitant]
     Route: 042
     Dates: start: 20080227, end: 20080227
  7. PRAVASTATIN SODIUM [Concomitant]
     Route: 048
     Dates: start: 19910101, end: 20080312
  8. BENIDIPINE HYDROCHLORIDE [Concomitant]
     Route: 048
     Dates: start: 19920101, end: 20080312
  9. VALSARTAN [Concomitant]
     Route: 048
     Dates: start: 20010101, end: 20080312
  10. AZULENE SULFONATE SODIUM/L-GLUTAMINE [Concomitant]
     Route: 048
     Dates: start: 20010101, end: 20080312
  11. URSODIOL [Concomitant]
     Route: 048
     Dates: start: 20010101, end: 20080312
  12. GLIMEPIRIDE [Concomitant]
     Route: 048
     Dates: start: 20000101, end: 20080312
  13. INSULIN ASPART [Concomitant]
     Route: 058
     Dates: start: 20050101, end: 20080301
  14. CLONAZEPAM [Concomitant]
     Route: 048
  15. HALOPERIDOL [Concomitant]
     Route: 042
  16. DEXAMETHASONE SODIUM PHOSPHATE [Concomitant]
     Route: 042
     Dates: start: 20080227, end: 20080227

REACTIONS (3)
  - ANOREXIA [None]
  - FATIGUE [None]
  - HICCUPS [None]
